FAERS Safety Report 4342178-4 (Version None)
Quarter: 2004Q2

REPORT INFORMATION
  Report Type: 
  Country: None (occurrence: None)
  Receive Date: 20040409
  Receipt Date: 20031126
  Transmission Date: 20050107
  Serious: Yes (Hospitalization)
  Sender: FDA-Public Use
  Company Number: 03P-163-0242860-00

PATIENT
  Age: 56 Year
  Sex: Male

DRUGS (1)
  1. DEPAKOTE [Suspect]
     Indication: EPILEPSY
     Dates: start: 19970101

REACTIONS (4)
  - AMMONIA INCREASED [None]
  - CONFUSIONAL STATE [None]
  - LETHARGY [None]
  - PYREXIA [None]
